FAERS Safety Report 11220187 (Version 1)
Quarter: 2015Q2

REPORT INFORMATION
  Report Type: Spontaneous
  Country: US (occurrence: None)
  Receive Date: 20150624
  Receipt Date: 20150624
  Transmission Date: 20150821
  Serious: Yes (Disabling)
  Sender: FDA-Public Use
  Company Number: None

PATIENT
  Age: 38 Year
  Sex: Female
  Weight: 88.45 kg

DRUGS (1)
  1. CIPRO [Suspect]
     Active Substance: CIPROFLOXACIN HYDROCHLORIDE
     Indication: URINARY TRACT INFECTION
     Dosage: 1  TWICE DAILY TAKEN BY MOUTH
     Route: 048
     Dates: start: 20150603, end: 20150609

REACTIONS (33)
  - Asthenia [None]
  - Skin tightness [None]
  - Joint crepitation [None]
  - Tongue disorder [None]
  - Tinnitus [None]
  - Muscle twitching [None]
  - Hyperaesthesia [None]
  - Neuropathy peripheral [None]
  - Chills [None]
  - Headache [None]
  - Balance disorder [None]
  - Dizziness [None]
  - Abdominal pain [None]
  - Muscle fatigue [None]
  - Feeling abnormal [None]
  - Formication [None]
  - Hypoaesthesia [None]
  - Nausea [None]
  - Muscular weakness [None]
  - Pyrexia [None]
  - Myalgia [None]
  - Dyskinesia [None]
  - Coordination abnormal [None]
  - Paraesthesia [None]
  - Chest discomfort [None]
  - Joint stiffness [None]
  - Musculoskeletal stiffness [None]
  - Visual impairment [None]
  - Pain in extremity [None]
  - Burning sensation [None]
  - Tremor [None]
  - Sluggishness [None]
  - Sensory disturbance [None]

NARRATIVE: CASE EVENT DATE: 20150604
